FAERS Safety Report 4560526-7 (Version None)
Quarter: 2005Q1

REPORT INFORMATION
  Report Type: 
  Country: None (occurrence: None)
  Receive Date: 20050125
  Receipt Date: 20040510
  Transmission Date: 20050727
  Serious: No
  Sender: FDA-Public Use
  Company Number: AR-GLAXOSMITHKLINE-A0510676A

PATIENT
  Age: 29 Year
  Sex: Female

DRUGS (5)
  1. ZIDOVUDINE [Suspect]
     Indication: HIV INFECTION
     Dates: start: 20040101
  2. LAMIVUDINE [Suspect]
     Indication: HIV INFECTION
     Dosage: 150MG PER DAY
     Dates: start: 20040101
  3. NEVIRAPINE [Concomitant]
     Indication: HIV INFECTION
     Dosage: 200MG PER DAY
     Dates: start: 20040101
  4. FOLATE [Concomitant]
  5. PRENATAL VITAMINS [Concomitant]

REACTIONS (3)
  - DRUG EXPOSURE DURING PREGNANCY [None]
  - STILLBIRTH [None]
  - ULTRASOUND SCAN ABNORMAL [None]
